FAERS Safety Report 8698013 (Version 2)
Quarter: 2013Q4

REPORT INFORMATION
  Report Type: Spontaneous
  Country: US (occurrence: US)
  Receive Date: 20120801
  Receipt Date: 20131108
  Transmission Date: 20140711
  Serious: Yes (Other)
  Sender: FDA-Public Use
  Company Number: US-MSD-1207USA011442

PATIENT
  Age: 57 Year
  Sex: Female

DRUGS (10)
  1. REBETOL [Suspect]
     Dosage: 1200 MG, QD
  2. VICTRELIS [Suspect]
     Dosage: 200MG,4TABLETS,THREE TIMES A DAY
  3. PEGINTRON [Suspect]
     Dosage: 180 MICROGRAM, QD
  4. PEGASYS [Suspect]
     Dosage: 180MCG,ONCE A WEEK
  5. MILK THISTLE [Concomitant]
  6. ALLEGRA-D [Concomitant]
  7. OMEPRAZOLE [Concomitant]
  8. ZOLPIDEM TARTRATE [Concomitant]
  9. ECHINACEA [Concomitant]
  10. CITALOPRAM HYDROBROMIDE [Concomitant]

REACTIONS (30)
  - Dizziness [Unknown]
  - Chills [Unknown]
  - Hepatomegaly [Unknown]
  - Incorrect dose administered [Unknown]
  - Hepatic fibrosis [Unknown]
  - Melaena [Unknown]
  - Hepatic steatosis [Unknown]
  - Contusion [Unknown]
  - Haemoglobin decreased [Unknown]
  - Abdominal pain [Unknown]
  - Change of bowel habit [Unknown]
  - Arthralgia [Unknown]
  - Diarrhoea [Unknown]
  - Pyrexia [Unknown]
  - Red blood cell count decreased [Unknown]
  - Insomnia [Unknown]
  - Fatigue [Unknown]
  - Haemorrhoids [Unknown]
  - White blood cell count decreased [Unknown]
  - Impaired healing [Unknown]
  - Laboratory test abnormal [Unknown]
  - Wheezing [Unknown]
  - Joint stiffness [Unknown]
  - Asthenia [Unknown]
  - Constipation [Unknown]
  - Laceration [Unknown]
  - Night sweats [Unknown]
  - Dyspnoea [Unknown]
  - Hyperhidrosis [Unknown]
  - Haematocrit decreased [Unknown]
